FAERS Safety Report 9865315 (Version 1)
Quarter: 2014Q1

REPORT INFORMATION
  Report Type: Spontaneous
  Country: US (occurrence: US)
  Receive Date: 20140203
  Receipt Date: 20140203
  Transmission Date: 20141002
  Serious: Yes (Other)
  Sender: FDA-Public Use
  Company Number: PHEH2014US002053

PATIENT
  Age: 88 Year
  Sex: Female

DRUGS (2)
  1. EXELON PATCH [Suspect]
     Indication: DEMENTIA
     Dosage: 4.6 MG, UNK
     Route: 062
  2. EXELON PATCH [Suspect]
     Dosage: 9.5 MG, UNK
     Route: 062

REACTIONS (7)
  - Head injury [Unknown]
  - Pleural effusion [Unknown]
  - Unresponsive to stimuli [Unknown]
  - Fall [Unknown]
  - Syncope [Unknown]
  - Disorientation [Unknown]
  - Memory impairment [Unknown]
